FAERS Safety Report 5797364-3 (Version None)
Quarter: 2008Q3

REPORT INFORMATION
  Report Type: 
  Country: None (occurrence: None)
  Receive Date: 20080701
  Receipt Date: 20080625
  Transmission Date: 20090109
  Serious: No
  Sender: FDA-Public Use
  Company Number: US-BOEHRINGER INGELHEIM GMBH, GERMANY-2008-BP-10033BP

PATIENT

DRUGS (1)
  1. MIRAPEX [Suspect]

REACTIONS (2)
  - HYPERSEXUALITY [None]
  - PATHOLOGICAL GAMBLING [None]
